FAERS Safety Report 19506619 (Version 5)
Quarter: 2021Q4

REPORT INFORMATION
  Report Type: Spontaneous
  Country: IL (occurrence: IL)
  Receive Date: 20210708
  Receipt Date: 20211215
  Transmission Date: 20220303
  Serious: Yes (Hospitalization)
  Sender: FDA-Public Use
  Company Number: IL-CELGENE-ISR-20210700536

PATIENT
  Age: 85 Year
  Sex: Female
  Weight: 74 kg

DRUGS (30)
  1. AZACITIDINE [Suspect]
     Active Substance: AZACITIDINE
     Indication: Myelodysplastic syndrome
     Dosage: 75 MILLIGRAM/SQ. METER
     Route: 058
     Dates: start: 20201206, end: 20210513
  2. AZACITIDINE [Suspect]
     Active Substance: AZACITIDINE
     Dosage: 75 MILLIGRAM/SQ. METER
     Route: 058
     Dates: start: 20200801
  3. VENETOCLAX [Suspect]
     Active Substance: VENETOCLAX
     Indication: Myelodysplastic syndrome
     Dosage: 400 MILLIGRAM
     Route: 048
     Dates: start: 20201206, end: 20210522
  4. VENETOCLAX [Suspect]
     Active Substance: VENETOCLAX
     Dosage: 400 MILLIGRAM
     Route: 048
     Dates: start: 20210801
  5. ALLOPURINOL [Concomitant]
     Active Substance: ALLOPURINOL
     Indication: Prophylaxis
     Dosage: 300MG
     Route: 048
     Dates: start: 20201103
  6. Cerebonin [Concomitant]
     Indication: Amnesia
     Dosage: 120 MILLIGRAM
     Route: 048
     Dates: start: 202004
  7. Fusid [Concomitant]
     Indication: Oedema
     Dosage: 40 MILLIGRAM
     Route: 048
     Dates: start: 202004
  8. ATENOLOL [Concomitant]
     Active Substance: ATENOLOL
     Indication: Hypertension
     Dosage: 50 MILLIGRAM
     Route: 048
     Dates: start: 2004
  9. Arthryl [Concomitant]
     Indication: Osteoarthritis
     Dosage: 1500 MILLIGRAM
     Route: 048
     Dates: start: 20160818
  10. NEXIUM [Concomitant]
     Active Substance: ESOMEPRAZOLE MAGNESIUM
     Indication: Gastrooesophageal reflux disease
     Dosage: 20 MILLIGRAM
     Route: 048
     Dates: start: 200503
  11. VENLAFAXINE HYDROCHLORIDE [Concomitant]
     Active Substance: VENLAFAXINE HYDROCHLORIDE
     Indication: Anxiety
     Dosage: 75 MILLIGRAM
     Route: 048
     Dates: start: 200503
  12. EUTHYROX [Concomitant]
     Active Substance: LEVOTHYROXINE SODIUM
     Indication: Hypothyroidism
     Dosage: 100 MICROGRAM
     Route: 048
     Dates: start: 200503
  13. CLOPIDOGREL [Concomitant]
     Active Substance: CLOPIDOGREL BISULFATE
     Indication: Hypertension
     Dosage: 75 MILLIGRAM
     Route: 048
     Dates: start: 2004
  14. Ezecor [Concomitant]
     Indication: Hyperlipidaemia
     Dosage: 10 MILLIGRAM
     Route: 048
     Dates: start: 200503
  15. Curcumin C3 [Concomitant]
     Indication: Supportive care
     Dosage: 1000 MILLIGRAM
     Route: 048
     Dates: start: 2009
  16. VITAMIN C [Concomitant]
     Active Substance: ASCORBIC ACID
     Indication: Supportive care
     Dosage: 500 MILLIGRAM
     Route: 048
     Dates: start: 2019
  17. Collagen boost [Concomitant]
     Indication: Supportive care
     Route: 048
     Dates: start: 2019
  18. BETAMETHASONE DIPROPIONATE\CALCIPOTRIENE HYDRATE [Concomitant]
     Active Substance: BETAMETHASONE DIPROPIONATE\CALCIPOTRIENE HYDRATE
     Indication: Psoriasis
     Dosage: 30 GRAM
     Route: 061
     Dates: start: 202006
  19. Aqua cream [Concomitant]
     Indication: Psoriasis
     Dosage: 100 MILLILITER
     Route: 061
     Dates: start: 202006
  20. LACTULOSE [Concomitant]
     Active Substance: LACTULOSE
     Indication: Constipation
     Dosage: 500 MILLILITER
     Route: 048
     Dates: start: 2005
  21. Procto glyvenol [Concomitant]
     Indication: Haemorrhoids
     Route: 061
     Dates: start: 202003
  22. OXAZEPAM [Concomitant]
     Active Substance: OXAZEPAM
     Indication: Anxiety
     Route: 048
     Dates: start: 202003
  23. LEVOFLOXACIN [Concomitant]
     Active Substance: LEVOFLOXACIN
     Indication: Infection prophylaxis
     Dosage: 500 MICROGRAM/SQ. METER
     Route: 048
     Dates: start: 20210607
  24. Pramin [Concomitant]
     Indication: Nausea
     Route: 048
     Dates: start: 20210209
  25. ACETAMINOPHEN [Concomitant]
     Active Substance: ACETAMINOPHEN
     Indication: Back pain
     Route: 048
     Dates: start: 20210214
  26. ACETAMINOPHEN [Concomitant]
     Active Substance: ACETAMINOPHEN
     Indication: Headache
  27. AUGMENTIN [Concomitant]
     Active Substance: AMOXICILLIN\CLAVULANATE POTASSIUM
     Indication: Infection
     Dosage: 1750 MILLIGRAM
     Route: 048
     Dates: start: 20210223
  28. TRANEXAMIC ACID [Concomitant]
     Active Substance: TRANEXAMIC ACID
     Indication: Haemorrhage
     Dosage: 1500 MILLIGRAM
     Route: 048
     Dates: start: 20210525
  29. ZYLOL [Concomitant]
     Indication: Prophylaxis
     Dosage: 300 MILLIGRAM
     Route: 048
     Dates: start: 20201206
  30. Stator [Concomitant]
     Indication: Hyperlipidaemia
     Dosage: 5 MILLIGRAM
     Route: 048
     Dates: start: 200503

REACTIONS (1)
  - Epistaxis [Recovered/Resolved]

NARRATIVE: CASE EVENT DATE: 20210624
